FAERS Safety Report 9110212 (Version 1)
Quarter: 2013Q1

REPORT INFORMATION
  Report Type: Report from Study
  Country: CA (occurrence: CA)
  Receive Date: 20130222
  Receipt Date: 20130222
  Transmission Date: 20140127
  Serious: Yes (Hospitalization)
  Sender: FDA-Public Use
  Company Number: CA-ROCHE-1193803

PATIENT
  Age: 13 Year
  Sex: Female
  Weight: 38.6 kg

DRUGS (2)
  1. ACTEMRA [Suspect]
     Indication: JUVENILE IDIOPATHIC ARTHRITIS
     Route: 042
     Dates: start: 20121026
  2. PREDNISONE [Concomitant]
     Dosage: DOSE: 10 MG X 2
     Route: 065

REACTIONS (1)
  - Pancreatitis [Unknown]
